FAERS Safety Report 5064388-3 (Version None)
Quarter: 2006Q3

REPORT INFORMATION
  Report Type: 
  Country: None (occurrence: None)
  Receive Date: 20060728
  Receipt Date: 20060720
  Transmission Date: 20061208
  Serious: Yes (Other)
  Sender: FDA-Public Use
  Company Number: CA-JNJFOC-20060606372

PATIENT
  Sex: Female
  Weight: 63.5 kg

DRUGS (1)
  1. ORTHO EVRA [Suspect]
     Indication: CONTRACEPTION
     Route: 062

REACTIONS (6)
  - DIZZINESS [None]
  - FACE OEDEMA [None]
  - NAUSEA [None]
  - PHARYNGEAL OEDEMA [None]
  - TONGUE OEDEMA [None]
  - VOMITING [None]
